FAERS Safety Report 5606091-4 (Version None)
Quarter: 2008Q1

REPORT INFORMATION
  Report Type: 
  Country: None (occurrence: None)
  Receive Date: 20080123
  Receipt Date: 20080123
  Transmission Date: 20080703
  Serious: No
  Sender: FDA-Public Use
  Company Number: None

PATIENT
  Sex: Male
  Weight: 83.0083 kg

DRUGS (1)
  1. OPTIRAY 160 [Suspect]
     Indication: NEPHROLITHIASIS
     Dosage: 100CC ONCE IV BOLUS
     Route: 040
     Dates: start: 20080122, end: 20080122

REACTIONS (4)
  - BLOOD PRESSURE DIASTOLIC INCREASED [None]
  - PYREXIA [None]
  - RASH ERYTHEMATOUS [None]
  - TREMOR [None]
